FAERS Safety Report 8201721-5 (Version None)
Quarter: 2012Q1

REPORT INFORMATION
  Report Type: 
  Country: None (occurrence: None)
  Receive Date: 20120312
  Receipt Date: 20120306
  Transmission Date: 20120608
  Serious: Yes (Other)
  Sender: FDA-Public Use
  Company Number: US-BAYER-2012-022698

PATIENT
  Sex: Female

DRUGS (1)
  1. MIRENA [Suspect]
     Dosage: 20 ?G/D, CONT
     Route: 015

REACTIONS (6)
  - VAGINAL HAEMORRHAGE [None]
  - AMENORRHOEA [None]
  - OVARIAN CYST [None]
  - MUSCLE SPASMS [None]
  - DEVICE DISLOCATION [None]
  - ABDOMINAL DISTENSION [None]
